FAERS Safety Report 6342420-4 (Version None)
Quarter: 2009Q3

REPORT INFORMATION
  Report Type: 
  Country: None (occurrence: None)
  Receive Date: 20090908
  Receipt Date: 20040210
  Transmission Date: 20100115
  Serious: No
  Sender: FDA-Public Use
  Company Number: JP-ROCHE-333684

PATIENT
  Sex: Female
  Weight: 3.4 kg

DRUGS (5)
  1. TAMIFLU [Suspect]
     Dates: start: 20021225, end: 20021229
  2. PL [Concomitant]
     Dates: start: 20021225, end: 20021229
  3. MUCODYNE [Concomitant]
     Dates: start: 20021225, end: 20021229
  4. LETRAC [Concomitant]
     Dates: start: 20021225, end: 20021229
  5. HUSCODE [Concomitant]
     Dates: start: 20021225, end: 20021229

REACTIONS (2)
  - DRUG EXPOSURE DURING PREGNANCY [None]
  - NORMAL NEWBORN [None]
